FAERS Safety Report 12880334 (Version 2)
Quarter: 2016Q4

REPORT INFORMATION
  Report Type: Spontaneous
  Country: JP (occurrence: JP)
  Receive Date: 20161025
  Receipt Date: 20161101
  Transmission Date: 20170207
  Serious: Yes (Other)
  Sender: FDA-Public Use
  Company Number: JP-ASTELLAS-2016JP017686

PATIENT
  Sex: Male
  Weight: 100 kg

DRUGS (1)
  1. GRACEPTOR [Suspect]
     Active Substance: TACROLIMUS
     Indication: RENAL TRANSPLANT
     Route: 065
     Dates: start: 20161011

REACTIONS (1)
  - Kidney transplant rejection [Recovered/Resolved]

NARRATIVE: CASE EVENT DATE: 201610
